FAERS Safety Report 25332225 (Version 4)
Quarter: 2025Q3

REPORT INFORMATION
  Report Type: Spontaneous
  Country: US (occurrence: US)
  Receive Date: 20250519
  Receipt Date: 20250903
  Transmission Date: 20251020
  Serious: Yes (Other)
  Sender: PFIZER
  Company Number: US-PFIZER INC-202500100566

PATIENT
  Age: 50 Year
  Sex: Male

DRUGS (4)
  1. HYMPAVZI [Suspect]
     Active Substance: MARSTACIMAB-HNCQ
     Indication: Factor IX deficiency
     Dates: start: 20250313
  2. BENEFIX [Suspect]
     Active Substance: COAGULATION FACTOR IX RECOMBINANT HUMAN\ISOPROPYL ALCOHOL
     Indication: Factor IX deficiency
  3. REBINYN [Concomitant]
     Active Substance: COAGULATION FACTOR IX RECOMBINANT HUMAN
  4. IRON [Concomitant]
     Active Substance: IRON

REACTIONS (2)
  - Blood potassium decreased [Not Recovered/Not Resolved]
  - Epistaxis [Not Recovered/Not Resolved]
